FAERS Safety Report 8557206-X (Version None)
Quarter: 2012Q3

REPORT INFORMATION
  Report Type: 
  Country: None (occurrence: None)
  Receive Date: 20120801
  Receipt Date: 20120726
  Transmission Date: 20120928
  Serious: Yes (Other)
  Sender: FDA-Public Use
  Company Number: PHHY2012CH065321

PATIENT
  Age: 37 Year
  Sex: Male

DRUGS (7)
  1. RISPERDAL [Suspect]
  2. TEGRETOL [Suspect]
     Dates: start: 19970101
  3. TRUXAL [Suspect]
  4. DAPOTUM [Suspect]
  5. ZYPREXA [Suspect]
  6. HALDOL [Suspect]
  7. PIPAMPERONE [Suspect]

REACTIONS (8)
  - TONGUE PARALYSIS [None]
  - HEPATIC PAIN [None]
  - DYSKINESIA [None]
  - DIARRHOEA [None]
  - PYREXIA [None]
  - GAIT DISTURBANCE [None]
  - SPEECH DISORDER [None]
  - CONFUSIONAL STATE [None]
